FAERS Safety Report 10242856 (Version 4)
Quarter: 2014Q3

REPORT INFORMATION
  Report Type: Spontaneous
  Country: JP (occurrence: JP)
  Receive Date: 20140618
  Receipt Date: 20140811
  Transmission Date: 20150326
  Serious: Yes (Other)
  Sender: FDA-Public Use
  Company Number: JP-UCBSA-2014001400

PATIENT
  Age: 53 Year
  Sex: Female

DRUGS (11)
  1. DEPAKENE [Concomitant]
     Active Substance: VALPROIC ACID
     Dosage: 600 MG
     Route: 048
     Dates: start: 20140227
  2. ABILIFY [Concomitant]
     Active Substance: ARIPIPRAZOLE
     Dosage: 3 MG, OD
     Route: 048
     Dates: start: 20140227
  3. UNASYN [Interacting]
     Active Substance: AMPICILLIN SODIUM\SULBACTAM SODIUM
     Dosage: 6 G
     Route: 042
     Dates: start: 20140515, end: 20140530
  4. RIVOTRIL [Concomitant]
     Active Substance: CLONAZEPAM
     Dosage: 1 MG
     Route: 048
     Dates: start: 20140227
  5. LEVOFLOXACIN [Concomitant]
     Active Substance: LEVOFLOXACIN
     Dosage: UNKNOWN DOSE AND FREQUENCY
     Dates: start: 20140512
  6. KEPPRA [Interacting]
     Active Substance: LEVETIRACETAM
     Dosage: 125 MG/DAY
     Route: 048
     Dates: start: 20140528, end: 20140529
  7. KEPPRA [Suspect]
     Active Substance: LEVETIRACETAM
     Indication: EPILEPSY
     Dosage: 250 MG, ONCE DAILY (QD)
     Route: 048
     Dates: start: 20140423, end: 20140424
  8. KEPPRA [Interacting]
     Active Substance: LEVETIRACETAM
     Dosage: 500 MG, ONCE DAILY (QD)
     Route: 048
     Dates: start: 20140425, end: 20140520
  9. KEPPRA [Interacting]
     Active Substance: LEVETIRACETAM
     Dosage: 250 MG/DAY
     Route: 048
     Dates: start: 20140521, end: 20140527
  10. ABILIFY [Concomitant]
     Active Substance: ARIPIPRAZOLE
     Dosage: DAILY DOSE: 24 MG
     Route: 048
     Dates: start: 20140124
  11. DEPAKENE [Concomitant]
     Active Substance: VALPROIC ACID
     Dosage: 200 MG
     Route: 048
     Dates: start: 20131024

REACTIONS (3)
  - Bradycardia [Recovered/Resolved]
  - Drug interaction [Unknown]
  - Pyrexia [Recovered/Resolved]

NARRATIVE: CASE EVENT DATE: 2014
